FAERS Safety Report 5281302-6 (Version None)
Quarter: 2007Q1

REPORT INFORMATION
  Report Type: 
  Country: None (occurrence: None)
  Receive Date: 20061221
  Receipt Date: 20050204
  Transmission Date: 20070707
  Serious: No
  Sender: FDA-Public Use
  Company Number: 2003UW03417

PATIENT
  Age: 22 Year
  Sex: Female
  Weight: 104.3273 kg

DRUGS (5)
  1. SENSORCAINE [Suspect]
     Indication: CAESAREAN SECTION
     Dosage: 10 MG, ONCE, IT
     Route: 037
     Dates: start: 20030301
  2. SENSORCAINE [Suspect]
     Indication: CAESAREAN SECTION
     Dosage: 12 MG ONCE; IT
     Route: 037
  3. PEPCID [Concomitant]
  4. REGLAN [Concomitant]
  5. FENTANYL [Concomitant]

REACTIONS (1)
  - DRUG INEFFECTIVE [None]
